FAERS Safety Report 9656833 (Version 3)
Quarter: 2014Q1

REPORT INFORMATION
  Report Type: Report from Study
  Country: US (occurrence: US)
  Receive Date: 20131030
  Receipt Date: 20140108
  Transmission Date: 20141002
  Serious: Yes (Other)
  Sender: FDA-Public Use
  Company Number: US-TEVA-441223USA

PATIENT
  Age: 36 Year
  Sex: Female

DRUGS (3)
  1. CLARAVIS [Suspect]
     Dosage: 40MG EVERY OTHER DAY AND 80 MG ON OTHER DAYS
     Route: 048
     Dates: start: 201307, end: 20131011
  2. LOPRESSOR [Concomitant]
  3. BIRTH CONTROL PILLS [Concomitant]

REACTIONS (1)
  - Unintended pregnancy [Recovered/Resolved]
